FAERS Safety Report 5366273-6 (Version None)
Quarter: 2007Q2

REPORT INFORMATION
  Report Type: 
  Country: None (occurrence: None)
  Receive Date: 20070619
  Receipt Date: 20070619
  Transmission Date: 20071010
  Serious: Yes (Other)
  Sender: FDA-Public Use
  Company Number: None

PATIENT
  Age: 70 Year
  Sex: Female
  Weight: 87 kg

DRUGS (1)
  1. CEFTRIAXONE [Suspect]
     Indication: MONOCYTOSIS
     Dosage: 2GM DAILY IV
     Route: 042
     Dates: start: 20070102

REACTIONS (1)
  - RASH ERYTHEMATOUS [None]
